FAERS Safety Report 12218565 (Version 1)
Quarter: 2016Q1

REPORT INFORMATION
  Report Type: Spontaneous
  Country: US (occurrence: US)
  Receive Date: 20160329
  Receipt Date: 20160329
  Transmission Date: 20160526
  Serious: No
  Sender: FDA-Public Use
  Company Number: US-BAUSCH-BL-2015-017234

PATIENT
  Sex: Female

DRUGS (8)
  1. RETIN-A [Suspect]
     Active Substance: TRETINOIN
     Indication: PROPHYLAXIS
     Dosage: APPLY TOPICALLY TO FACE DAILY
     Route: 061
  2. TRETINOIN CREAM 0.1% [Suspect]
     Active Substance: TRETINOIN
     Indication: PROPHYLAXIS
     Dosage: APPLY TOPICALLY TO FACE DAILY
     Route: 061
  3. TRETINOIN CREAM 0.05% [Suspect]
     Active Substance: TRETINOIN
     Indication: PROPHYLAXIS
     Dosage: APPLY TOPICALLY TO FACE DAILY
     Route: 061
  4. TRETINOIN CREAM 0.05% [Suspect]
     Active Substance: TRETINOIN
     Indication: SKIN WRINKLING
  5. RETIN-A [Suspect]
     Active Substance: TRETINOIN
     Indication: SKIN WRINKLING
  6. OBAGI TRETINOIN CREAM USP 0.1% (TRIAX) [Suspect]
     Active Substance: TRETINOIN
     Indication: PROPHYLAXIS
     Dosage: APPLY TOPICALLY TO FACE DAILY
     Route: 061
  7. TRETINOIN CREAM 0.1% [Suspect]
     Active Substance: TRETINOIN
     Indication: SKIN WRINKLING
  8. OBAGI TRETINOIN CREAM USP 0.1% (TRIAX) [Suspect]
     Active Substance: TRETINOIN
     Indication: SKIN WRINKLING

REACTIONS (1)
  - Off label use [Not Recovered/Not Resolved]
